FAERS Safety Report 24132675 (Version 1)
Quarter: 2024Q3

REPORT INFORMATION
  Report Type: Spontaneous
  Country: US (occurrence: None)
  Receive Date: 20240723
  Receipt Date: 20240723
  Transmission Date: 20241017
  Serious: Yes (unspecified)
  Sender: Public
  Company Number: None

PATIENT
  Age: 48 Year
  Sex: Female
  Weight: 86.4 kg

DRUGS (3)
  1. DIFLUCAN [Suspect]
     Active Substance: FLUCONAZOLE
     Indication: Fungal infection
     Dosage: 1 TABLET ORAL?
     Route: 048
     Dates: start: 20240720, end: 20240720
  2. ALBUTEROL [Concomitant]
     Active Substance: ALBUTEROL
  3. CULURELLE PROBIOTIC SUPPLEMENT [Concomitant]

REACTIONS (3)
  - Rash erythematous [None]
  - Pruritus [None]
  - Rash papular [None]

NARRATIVE: CASE EVENT DATE: 20240721
